FAERS Safety Report 17356202 (Version 2)
Quarter: 2020Q1

REPORT INFORMATION
  Report Type: Report from Study
  Country: IT (occurrence: IT)
  Receive Date: 20200131
  Receipt Date: 20200213
  Transmission Date: 20200409
  Serious: Yes (Other)
  Sender: FDA-Public Use
  Company Number: IT-PFIZER INC-2020036120

PATIENT
  Age: 50 Year
  Sex: Male
  Weight: 69 kg

DRUGS (5)
  1. RILUZOLE. [Concomitant]
     Active Substance: RILUZOLE
     Indication: AMYOTROPHIC LATERAL SCLEROSIS
     Dosage: UNK
     Route: 048
     Dates: start: 20180116
  2. ACETYL L CARNITINE [ACETYLCARNITINE HYDROCHLORIDE] [Concomitant]
     Indication: AMYOTROPHIC LATERAL SCLEROSIS
     Dosage: UNK
     Route: 048
     Dates: start: 20180116
  3. PANTOPRAZOLE [Concomitant]
     Active Substance: PANTOPRAZOLE
     Indication: AMYOTROPHIC LATERAL SCLEROSIS
     Dosage: UNK
     Route: 048
     Dates: start: 20180508
  4. VITAMIN E [Concomitant]
     Active Substance: .ALPHA.-TOCOPHEROL
     Indication: AMYOTROPHIC LATERAL SCLEROSIS
     Dosage: UNK
     Route: 048
     Dates: start: 20180116
  5. SIROLIMUS. [Suspect]
     Active Substance: SIROLIMUS
     Indication: AMYOTROPHIC LATERAL SCLEROSIS
     Dosage: 4 DF, DAILY
     Dates: start: 20180417, end: 20180514

REACTIONS (1)
  - Hepatitis acute [Recovered/Resolved]

NARRATIVE: CASE EVENT DATE: 20180515
